FAERS Safety Report 4968782-8 (Version None)
Quarter: 2006Q2

REPORT INFORMATION
  Report Type: 
  Country: None (occurrence: None)
  Receive Date: 20060411
  Receipt Date: 20060406
  Transmission Date: 20061013
  Serious: Yes (Hospitalization)
  Sender: FDA-Public Use
  Company Number: 2006CG00646

PATIENT
  Age: 67 Year
  Sex: Male

DRUGS (15)
  1. TENORMIN [Suspect]
     Indication: HYPERTENSION
     Route: 048
     Dates: end: 20060118
  2. DIFRAREL [Concomitant]
  3. NOVOMIX [Concomitant]
  4. LOVENOX [Concomitant]
  5. JAMYLENE [Concomitant]
  6. LOXEN [Concomitant]
  7. DAFALGAN [Concomitant]
  8. SKENAN [Concomitant]
  9. FONZYLANE [Concomitant]
  10. MORPHINE SULFATE [Concomitant]
  11. PRIMPERAN TAB [Concomitant]
  12. FORLAX [Concomitant]
  13. PRAXILENE [Concomitant]
  14. ILOMEDINE [Concomitant]
  15. NEURONTIN [Concomitant]

REACTIONS (4)
  - BACTERIA SPUTUM IDENTIFIED [None]
  - INTERSTITIAL LUNG DISEASE [None]
  - PLEURAL EFFUSION [None]
  - STAPHYLOCOCCAL INFECTION [None]
